FAERS Safety Report 10196251 (Version 1)
Quarter: 2014Q2

REPORT INFORMATION
  Report Type: Spontaneous
  Country: GB (occurrence: GB)
  Receive Date: 20140527
  Receipt Date: 20140527
  Transmission Date: 20141212
  Serious: Yes (Life-Threatening, Disabling)
  Sender: FDA-Public Use
  Company Number: GB-JNJFOC-20140515647

PATIENT
  Age: 75 Year
  Sex: Male
  Weight: 111.7 kg

DRUGS (6)
  1. INFLIXIMAB, RECOMBINANT [Suspect]
     Indication: PRODUCT USED FOR UNKNOWN INDICATION
     Route: 042
  2. FOLIC ACID [Concomitant]
     Dosage: 5 (UNITS UNSPECIFIED)
     Route: 048
  3. MELOXICAM [Concomitant]
     Dosage: 15 (UNITS UNSPECIFIED)
     Route: 048
  4. RAMIPRIL [Concomitant]
     Dosage: 5 (UNITS UNSPECIFIED)
     Route: 048
  5. PREDNISOLONE [Concomitant]
     Dosage: 5 (UNITS UNSPECIFIED)
     Route: 048
  6. METHOTREXATE [Concomitant]
     Indication: RHEUMATOID ARTHRITIS
     Dosage: 10 (UNITS UNSPECIFIED)
     Route: 048

REACTIONS (1)
  - Rectal adenocarcinoma [Not Recovered/Not Resolved]
